FAERS Safety Report 8537558-7 (Version None)
Quarter: 2012Q3

REPORT INFORMATION
  Report Type: 
  Country: None (occurrence: None)
  Receive Date: 20120725
  Receipt Date: 20120705
  Transmission Date: 20120928
  Serious: No
  Sender: FDA-Public Use
  Company Number: US-ASTRAZENECA-2012SE46288

PATIENT
  Age: 74 Year
  Sex: Female

DRUGS (1)
  1. ATACAND [Suspect]
     Route: 048

REACTIONS (5)
  - FATIGUE [None]
  - ASTHENIA [None]
  - APHAGIA [None]
  - DIZZINESS [None]
  - DRUG HYPERSENSITIVITY [None]
